FAERS Safety Report 5817972-0 (Version None)
Quarter: 2008Q3

REPORT INFORMATION
  Report Type: 
  Country: None (occurrence: None)
  Receive Date: 20080722
  Receipt Date: 20080108
  Transmission Date: 20090109
  Serious: No
  Sender: FDA-Public Use
  Company Number: US-BOEHRINGER INGELHEIM GMBH, GERMANY-2005-BP-20038BP

PATIENT
  Sex: Female

DRUGS (12)
  1. MIRAPEX [Suspect]
     Indication: PARKINSON'S DISEASE
     Dates: start: 20050822, end: 20050901
  2. MIRAPEX [Suspect]
     Dates: start: 20010901, end: 20050822
  3. AVONEX [Concomitant]
     Indication: MULTIPLE SCLEROSIS
     Route: 030
     Dates: start: 20050301
  4. AVONEX [Concomitant]
     Route: 030
     Dates: start: 20001101, end: 20040608
  5. STALEVO 100 [Concomitant]
     Indication: PARKINSON'S DISEASE
     Dates: start: 19990801
  6. WELLBUTRIN XL [Concomitant]
     Dates: start: 19990801
  7. COMTAN [Concomitant]
     Indication: PARKINSON'S DISEASE
     Dates: start: 20010501, end: 20030820
  8. SINEMET CR [Concomitant]
     Indication: PARKINSON'S DISEASE
     Dates: start: 19880101
  9. AMANTADINE HCL [Concomitant]
     Indication: PARKINSON'S DISEASE
     Dates: start: 20010801
  10. PAXIL [Concomitant]
     Indication: DEPRESSION
     Dates: start: 20000701
  11. VALTREX [Concomitant]
     Indication: HERPES VIRUS INFECTION
     Dates: start: 20010101
  12. SINEMET [Concomitant]
     Indication: PARKINSON'S DISEASE
     Dates: start: 19880101

REACTIONS (7)
  - COMPULSIVE SHOPPING [None]
  - EMOTIONAL DISTRESS [None]
  - HYPERPHAGIA [None]
  - OBSESSIVE-COMPULSIVE DISORDER [None]
  - PATHOLOGICAL GAMBLING [None]
  - SOMNOLENCE [None]
  - WEIGHT INCREASED [None]
